FAERS Safety Report 6264427-8 (Version None)
Quarter: 2009Q3

REPORT INFORMATION
  Report Type: 
  Country: None (occurrence: None)
  Receive Date: 20090710
  Receipt Date: 20090702
  Transmission Date: 20100115
  Serious: Yes (Other)
  Sender: FDA-Public Use
  Company Number: B0583178A

PATIENT
  Age: 76 Year
  Sex: Female

DRUGS (4)
  1. VENTOLIN [Suspect]
     Indication: BRONCHIAL HYPERREACTIVITY
     Route: 055
     Dates: start: 20090210, end: 20090210
  2. LEVOFLOXACIN [Suspect]
     Dosage: 5MGML PER DAY
     Route: 042
     Dates: start: 20090210, end: 20090210
  3. UNKNOWN DRUG [Suspect]
     Indication: BRONCHIAL HYPERREACTIVITY
     Route: 055
     Dates: start: 20090210, end: 20090210
  4. SEGURIL [Concomitant]
     Indication: CARDIAC FAILURE
     Dosage: 40MG PER DAY
     Route: 042
     Dates: start: 20090210, end: 20090210

REACTIONS (4)
  - BRONCHOSPASM [None]
  - DYSPNOEA [None]
  - HYPOXIA [None]
  - RASH [None]
